FAERS Safety Report 16232222 (Version 1)
Quarter: 2019Q2

REPORT INFORMATION
  Report Type: Spontaneous
  Country: GB (occurrence: GB)
  Receive Date: 20190424
  Receipt Date: 20190424
  Transmission Date: 20190711
  Serious: Yes (Disabling, Other)
  Sender: FDA-Public Use
  Company Number: GB-ACCORD-123578

PATIENT
  Age: 53 Year
  Sex: Male
  Weight: 90 kg

DRUGS (4)
  1. SPIRONOLACTONE. [Concomitant]
     Active Substance: SPIRONOLACTONE
  2. RAMIPRIL. [Suspect]
     Active Substance: RAMIPRIL
     Indication: CONGESTIVE CARDIOMYOPATHY
     Route: 048
     Dates: start: 20170606
  3. BISOPROLOL [Suspect]
     Active Substance: BISOPROLOL
     Indication: CONGESTIVE CARDIOMYOPATHY
     Route: 048
     Dates: start: 20170606
  4. ATORVASTATIN [Concomitant]
     Active Substance: ATORVASTATIN

REACTIONS (3)
  - Fatigue [Not Recovered/Not Resolved]
  - Memory impairment [Not Recovered/Not Resolved]
  - Disturbance in attention [Not Recovered/Not Resolved]

NARRATIVE: CASE EVENT DATE: 20170901
